FAERS Safety Report 6558182-1 (Version None)
Quarter: 2010Q1

REPORT INFORMATION
  Report Type: 
  Country: None (occurrence: None)
  Receive Date: 20100126
  Receipt Date: 20100120
  Transmission Date: 20100710
  Serious: Yes (Death, Other)
  Sender: FDA-Public Use
  Company Number: 2010US000165

PATIENT
  Age: 61 Year
  Sex: Male

DRUGS (2)
  1. PROGRAF [Suspect]
     Indication: GRAFT VERSUS HOST DISEASE
  2. PREDNISONE [Suspect]
     Indication: IMMUNOSUPPRESSION

REACTIONS (11)
  - ASPERGILLOSIS [None]
  - BACTERAEMIA [None]
  - BURKITT'S LYMPHOMA [None]
  - EPSTEIN-BARR VIRUS ASSOCIATED LYMPHOPROLIFERATIVE DISORDER [None]
  - HEPATIC ENZYME INCREASED [None]
  - MULTI-ORGAN FAILURE [None]
  - NOCARDIOSIS [None]
  - ORAL DISCOMFORT [None]
  - PANCYTOPENIA [None]
  - REFUSAL OF TREATMENT BY PATIENT [None]
  - SEPTIC SHOCK [None]
